FAERS Safety Report 4851696-1 (Version None)
Quarter: 2005Q4

REPORT INFORMATION
  Report Type: 
  Country: None (occurrence: None)
  Receive Date: 20051209
  Receipt Date: 20051130
  Transmission Date: 20060501
  Serious: Yes (Hospitalization, Other)
  Sender: FDA-Public Use
  Company Number: 219956

PATIENT
  Age: 56 Year
  Sex: Male

DRUGS (8)
  1. MABTHERA (RITUXIMAB) CONC FOR SOLUTION FOR INFUSION [Suspect]
     Indication: DRUG USE FOR UNKNOWN INDICATION
     Dates: start: 20030707, end: 20031108
  2. VINCRISTINE [Suspect]
     Indication: NEOPLASM MALIGNANT
     Dates: start: 20030526, end: 20031208
  3. DOXORUBICIN HYDROCHLORIDE [Suspect]
     Indication: DRUG USE FOR UNKNOWN INDICATION
     Dates: start: 20030526, end: 20031208
  4. PREDNISONE [Suspect]
     Indication: DRUG USE FOR UNKNOWN INDICATION
     Dates: start: 20030526, end: 20031208
  5. TRIMETHOPRIM [Suspect]
     Indication: PROPHYLAXIS
  6. NEULASTA [Suspect]
     Indication: PROPHYLAXIS
     Dosage: 6 MG, ORAL
     Route: 048
     Dates: start: 20030527, end: 20030813
  7. FOLATE SODIUM (FOLATE SODIUM) [Concomitant]
  8. MIDAZOLAM HCL [Concomitant]

REACTIONS (1)
  - FEBRILE NEUTROPENIA [None]
